FAERS Safety Report 9881765 (Version 1)
Quarter: 2014Q1

REPORT INFORMATION
  Report Type: Spontaneous
  Country: US (occurrence: US)
  Receive Date: 20140207
  Receipt Date: 20140207
  Transmission Date: 20141002
  Serious: No
  Sender: FDA-Public Use
  Company Number: US-009507513-1402USA001641

PATIENT
  Age: 54 Year
  Sex: Male

DRUGS (3)
  1. REBETOL [Suspect]
     Indication: HEPATITIS C
     Dosage: COMPLETED 14 OUT OF 48 WEEKS OF THERAPY
  2. PEGINTERFERON ALFA-2A [Suspect]
     Indication: HEPATITIS C
     Dosage: COMPLETED 14 OUT OF 48 WEEKS THERAPY
  3. TELAPREVIR [Suspect]
     Indication: HEPATITIS C
     Dosage: COMPLETED 14 OUT OF 48 WEEKS

REACTIONS (1)
  - Sarcoidosis [Unknown]
